FAERS Safety Report 24392220 (Version 1)
Quarter: 2024Q4

REPORT INFORMATION
  Report Type: Spontaneous
  Country: FR (occurrence: FR)
  Receive Date: 20241003
  Receipt Date: 20241003
  Transmission Date: 20250115
  Serious: Yes (Other)
  Sender: NOVARTIS
  Company Number: None

PATIENT
  Age: 61 Year
  Sex: Female

DRUGS (2)
  1. ALPELISIB [Suspect]
     Active Substance: ALPELISIB
     Indication: Breast cancer
     Dosage: 250 MG, QD
     Route: 048
     Dates: start: 201909
  2. FASLODEX [Suspect]
     Active Substance: FULVESTRANT
     Indication: Breast cancer
     Dosage: UNK
     Route: 030
     Dates: start: 201909

REACTIONS (2)
  - Raynaud^s phenomenon [Unknown]
  - Pruritus [Unknown]

NARRATIVE: CASE EVENT DATE: 20190901
